FAERS Safety Report 7240281-2 (Version None)
Quarter: 2011Q1

REPORT INFORMATION
  Report Type: 
  Country: None (occurrence: None)
  Receive Date: 20110124
  Receipt Date: 20110112
  Transmission Date: 20110831
  Serious: Yes (Other)
  Sender: FDA-Public Use
  Company Number: PHHY2011ES02852

PATIENT
  Age: 20 Year
  Sex: Female

DRUGS (1)
  1. CAFERGOT [Suspect]
     Indication: MIGRAINE WITHOUT AURA
     Dosage: UNK

REACTIONS (7)
  - PULSE PRESSURE DECREASED [None]
  - CAPILLARY DISORDER [None]
  - INTERMITTENT CLAUDICATION [None]
  - PULSE ABSENT [None]
  - PERIPHERAL ARTERIAL OCCLUSIVE DISEASE [None]
  - PERIPHERAL COLDNESS [None]
  - PAIN IN EXTREMITY [None]
